FAERS Safety Report 7981631-9 (Version None)
Quarter: 2011Q4

REPORT INFORMATION
  Report Type: 
  Country: None (occurrence: None)
  Receive Date: 20111213
  Receipt Date: 20111130
  Transmission Date: 20120403
  Serious: Yes (Life-Threatening, Hospitalization)
  Sender: FDA-Public Use
  Company Number: DAV-AE-FUR-11-20

PATIENT
  Age: 36 Year
  Sex: Male

DRUGS (3)
  1. LISINOPRIL [Concomitant]
  2. CARVEDILOL [Concomitant]
  3. FUROSEMIDE [Suspect]
     Indication: HYPERTENSION

REACTIONS (4)
  - CARDIOGENIC SHOCK [None]
  - HYPOGLYCAEMIA [None]
  - MULTIPLE DRUG OVERDOSE [None]
  - HYPOKALAEMIA [None]
